FAERS Safety Report 12839524 (Version 2)
Quarter: 2016Q4

REPORT INFORMATION
  Report Type: Spontaneous
  Country: US (occurrence: US)
  Receive Date: 20161012
  Receipt Date: 20161021
  Transmission Date: 20170207
  Serious: No
  Sender: FDA-Public Use
  Company Number: US-GLAXOSMITHKLINE-US2016148492

PATIENT
  Age: 66 Year
  Sex: Female

DRUGS (6)
  1. ATORVASTATIN [Concomitant]
     Active Substance: ATORVASTATIN
  2. COQ 10 [Concomitant]
     Active Substance: UBIDECARENONE
  3. NUCALA [Suspect]
     Active Substance: MEPOLIZUMAB
     Indication: ASTHMA
     Dosage: UNK, CYC
     Route: 042
     Dates: start: 20160818
  4. EVISTA [Concomitant]
     Active Substance: RALOXIFENE HYDROCHLORIDE
  5. SYMBICORT [Concomitant]
     Active Substance: BUDESONIDE\FORMOTEROL FUMARATE DIHYDRATE
  6. CALCIUM [Concomitant]
     Active Substance: CALCIUM

REACTIONS (8)
  - Pain [Recovered/Resolved]
  - Dyspnoea [Unknown]
  - Swelling [Recovered/Resolved]
  - Fatigue [Recovered/Resolved]
  - Urticaria [Unknown]
  - Blood pressure systolic increased [Recovered/Resolved]
  - Headache [Recovered/Resolved]
  - Pruritus [Recovered/Resolved]

NARRATIVE: CASE EVENT DATE: 201608
